FAERS Safety Report 19183268 (Version 3)
Quarter: 2021Q3

REPORT INFORMATION
  Report Type: Spontaneous
  Country: JP (occurrence: JP)
  Receive Date: 20210427
  Receipt Date: 20210813
  Transmission Date: 20211014
  Serious: Yes (Hospitalization)
  Sender: FDA-Public Use
  Company Number: JP-TAIHO ONCOLOGY  INC-JPTT210161

PATIENT
  Age: 76 Year
  Sex: Male
  Weight: 66 kg

DRUGS (3)
  1. AVASTIN [Suspect]
     Active Substance: BEVACIZUMAB
     Indication: COLON CANCER METASTATIC
     Route: 041
     Dates: start: 20210119, end: 20210406
  2. LONSURF [Suspect]
     Active Substance: TIPIRACIL HYDROCHLORIDE\TRIFLURIDINE
     Indication: COLON CANCER METASTATIC
     Dosage: ON DAYS 1?5 AND 8?12, DETAILS NOT REPORTED
     Route: 048
     Dates: start: 20210119, end: 20210406
  3. RHEUMATREX [Suspect]
     Active Substance: METHOTREXATE SODIUM
     Indication: RHEUMATOID ARTHRITIS
     Dosage: 1 DOSE/WEEK
     Route: 048
     Dates: start: 2015, end: 20210406

REACTIONS (4)
  - Auricular swelling [Recovering/Resolving]
  - Folliculitis [Unknown]
  - Otorrhoea [Recovering/Resolving]
  - Rash [Recovering/Resolving]

NARRATIVE: CASE EVENT DATE: 20210409
